FAERS Safety Report 18011438 (Version 1)
Quarter: 2020Q3

REPORT INFORMATION
  Report Type: Report from Study
  Country: None (occurrence: US)
  Receive Date: 20200712
  Receipt Date: 20200712
  Transmission Date: 20201103
  Serious: Yes (Hospitalization)
  Sender: FDA-Public Use
  Company Number: US-ABBVIE-20K-163-3417821-00

PATIENT
  Sex: Female

DRUGS (2)
  1. HUMIRA [Suspect]
     Active Substance: ADALIMUMAB
     Route: 058
     Dates: start: 2020, end: 20200531
  2. HUMIRA [Suspect]
     Active Substance: ADALIMUMAB
     Indication: RHEUMATOID ARTHRITIS
     Route: 058
     Dates: start: 20200314, end: 2020

REACTIONS (17)
  - Nausea [Unknown]
  - Colitis [Unknown]
  - Pain [Unknown]
  - Depression [Unknown]
  - Cystitis [Recovered/Resolved]
  - Anxiety [Unknown]
  - Dry mouth [Unknown]
  - Arthralgia [Unknown]
  - Joint stiffness [Unknown]
  - Urinary tract infection [Unknown]
  - Hyperhidrosis [Unknown]
  - Diarrhoea [Unknown]
  - Joint swelling [Unknown]
  - Loss of personal independence in daily activities [Unknown]
  - Malaise [Unknown]
  - Gait disturbance [Unknown]
  - Swelling [Unknown]

NARRATIVE: CASE EVENT DATE: 2020
